FAERS Safety Report 12686839 (Version 1)
Quarter: 2016Q3

REPORT INFORMATION
  Report Type: Spontaneous
  Country: US (occurrence: US)
  Receive Date: 20160825
  Receipt Date: 20160825
  Transmission Date: 20161109
  Serious: No
  Sender: FDA-Public Use
  Company Number: US-JAZZ-2016-US-007241

PATIENT
  Sex: Male

DRUGS (17)
  1. STRATTERA [Concomitant]
     Active Substance: ATOMOXETINE HYDROCHLORIDE
  2. FLUOXETINE HCL [Concomitant]
     Active Substance: FLUOXETINE HYDROCHLORIDE
  3. XYREM [Suspect]
     Active Substance: SODIUM OXYBATE
     Indication: CATAPLEXY
     Dosage: DOSE ADJUSTMENTS
     Route: 048
  4. COLACE [Concomitant]
     Active Substance: DOCUSATE SODIUM
  5. EMSAM [Concomitant]
     Active Substance: SELEGILINE
  6. XYREM [Suspect]
     Active Substance: SODIUM OXYBATE
     Indication: NARCOLEPSY
     Dosage: 3 G, BID
     Route: 048
     Dates: start: 201105, end: 201107
  7. STRATTERA [Concomitant]
     Active Substance: ATOMOXETINE HYDROCHLORIDE
  8. MAGNESIUM OXIDE. [Concomitant]
     Active Substance: MAGNESIUM OXIDE
  9. XYREM [Suspect]
     Active Substance: SODIUM OXYBATE
     Dosage: 4.5 G, BID
     Route: 048
     Dates: start: 201601
  10. NUVIGIL [Concomitant]
     Active Substance: ARMODAFINIL
  11. CYMBALTA [Concomitant]
     Active Substance: DULOXETINE HYDROCHLORIDE
  12. MODAFINIL. [Concomitant]
     Active Substance: MODAFINIL
  13. RANITIDINE. [Concomitant]
     Active Substance: RANITIDINE
  14. EX-LAX REGULAR STRENGTH STIMULANT LAXATIVE [Concomitant]
     Active Substance: SENNOSIDES
  15. CALCIUM CARBONATE. [Concomitant]
     Active Substance: CALCIUM CARBONATE
  16. VOLTAREN [Concomitant]
     Active Substance: DICLOFENAC SODIUM
  17. TUMS EX [Concomitant]
     Active Substance: CALCIUM CARBONATE

REACTIONS (1)
  - Dyspepsia [Unknown]
